FAERS Safety Report 9307878 (Version 1)
Quarter: 2013Q2

REPORT INFORMATION
  Report Type: Spontaneous
  Country: IT (occurrence: IT)
  Receive Date: 20130524
  Receipt Date: 20130524
  Transmission Date: 20140414
  Serious: Yes (Hospitalization, Other)
  Sender: FDA-Public Use
  Company Number: IT-BRISTOL-MYERS SQUIBB COMPANY-18899971

PATIENT
  Age: 67 Year
  Sex: Female

DRUGS (1)
  1. COUMADIN TABS 5 MG [Suspect]
     Indication: MITRAL VALVE REPLACEMENT
     Dosage: 1DF:1 TAB
     Route: 048
     Dates: start: 20120924, end: 20130407

REACTIONS (9)
  - Gastrointestinal haemorrhage [Recovered/Resolved]
  - Haemothorax [Unknown]
  - Supraventricular tachycardia [Recovered/Resolved]
  - Renal failure [Unknown]
  - Hypovolaemia [Unknown]
  - Anaemia [Recovered/Resolved]
  - Overdose [Unknown]
  - Multiple fractures [Unknown]
  - Fall [Unknown]
